FAERS Safety Report 8496323-X (Version None)
Quarter: 2012Q3

REPORT INFORMATION
  Report Type: 
  Country: None (occurrence: None)
  Receive Date: 20120709
  Receipt Date: 20120703
  Transmission Date: 20120928
  Serious: Yes (Other)
  Sender: FDA-Public Use
  Company Number: US-PFIZER INC-2012137775

PATIENT
  Sex: Female
  Weight: 61 kg

DRUGS (4)
  1. CLARITIN [Concomitant]
     Dosage: UNK
  2. DEPO-PROVERA [Suspect]
     Dosage: UNK
     Route: 030
     Dates: start: 20091201, end: 20100201
  3. DEPO-PROVERA [Suspect]
     Indication: CONTRACEPTION
     Dosage: UNK
     Route: 030
  4. DEPO-PROVERA [Suspect]
     Dosage: 150 MG, SINGLE
     Route: 030
     Dates: start: 20100201, end: 20100201

REACTIONS (2)
  - BREAST CANCER [None]
  - ENDOCRINE DISORDER [None]
